FAERS Safety Report 25290592 (Version 1)
Quarter: 2025Q2

REPORT INFORMATION
  Report Type: Report from Study
  Country: US (occurrence: US)
  Receive Date: 20250510
  Receipt Date: 20250510
  Transmission Date: 20250717
  Serious: No
  Sender: Karo Pharma
  Company Number: US-Karo Pharma-2176482

PATIENT
  Age: 48 Year
  Sex: Female

DRUGS (13)
  1. TERBINAFINE [Suspect]
     Active Substance: TERBINAFINE
     Indication: Product used for unknown indication
  2. METHOTREXATE [Suspect]
     Active Substance: METHOTREXATE
  3. CYCLOSPORINE [Suspect]
     Active Substance: CYCLOSPORINE
  4. KETOCONAZOLE [Suspect]
     Active Substance: KETOCONAZOLE
  5. AMITRIPTYLINE HYDROCHLORIDE [Suspect]
     Active Substance: AMITRIPTYLINE HYDROCHLORIDE
  6. NYSTATIN [Suspect]
     Active Substance: NYSTATIN
  7. ALBUTEROL SULFATE [Suspect]
     Active Substance: ALBUTEROL SULFATE
  8. HYDROCORTISONE [Suspect]
     Active Substance: HYDROCORTISONE
  9. TACROLIMUS [Suspect]
     Active Substance: TACROLIMUS
  10. ARIPIPRAZOLE [Suspect]
     Active Substance: ARIPIPRAZOLE
  11. CLINDAMYCIN PHOSPHATE [Suspect]
     Active Substance: CLINDAMYCIN PHOSPHATE
  12. ATORVASTATIN CALCIUM [Suspect]
     Active Substance: ATORVASTATIN CALCIUM
  13. CLOBETASOL [Suspect]
     Active Substance: CLOBETASOL

REACTIONS (2)
  - Psoriasis [Unknown]
  - Product use in unapproved indication [Unknown]
